FAERS Safety Report 7444605-2 (Version None)
Quarter: 2011Q2

REPORT INFORMATION
  Report Type: 
  Country: None (occurrence: None)
  Receive Date: 20110426
  Receipt Date: 20110426
  Transmission Date: 20111010
  Serious: Yes (Other)
  Sender: FDA-Public Use
  Company Number: None

PATIENT
  Sex: Female
  Weight: 61.6892 kg

DRUGS (6)
  1. NAVANE [Suspect]
     Indication: PRODUCT MEASURED POTENCY ISSUE
     Dosage: 2 MG ONE TIME ORALLY
     Route: 048
     Dates: start: 20110324
  2. NAVANE [Suspect]
     Indication: PRODUCT MEASURED POTENCY ISSUE
     Dosage: 10 MG DAILY ORALLY
     Route: 048
     Dates: start: 20000101, end: 20050101
  3. NAVANE [Suspect]
     Indication: SCHIZOPHRENIA
     Dosage: 10 MG DAILY ORALLY
     Route: 048
     Dates: start: 20000101, end: 20050101
  4. NAVANE [Suspect]
     Indication: PRODUCT MEASURED POTENCY ISSUE
     Dosage: 10 MG DAILY ORALLY
     Route: 048
     Dates: start: 20070101
  5. NAVANE [Suspect]
     Indication: SCHIZOPHRENIA
     Dosage: 10 MG DAILY ORALLY
     Route: 048
     Dates: start: 20070101
  6. CASCARA SAGRADA [Concomitant]

REACTIONS (3)
  - SENSORY DISTURBANCE [None]
  - PRODUCT MEASURED POTENCY ISSUE [None]
  - HAEMATURIA [None]
